FAERS Safety Report 18224852 (Version 2)
Quarter: 2020Q4

REPORT INFORMATION
  Report Type: Spontaneous
  Country: DE (occurrence: DE)
  Receive Date: 20200903
  Receipt Date: 20201221
  Transmission Date: 20210113
  Serious: Yes (Other)
  Sender: FDA-Public Use
  Company Number: DE-AUROBINDO-AUR-APL-2020-045764

PATIENT
  Age: 27 Year
  Sex: Female

DRUGS (6)
  1. LACOSAMIDE. [Suspect]
     Active Substance: LACOSAMIDE
     Dosage: UNK (DOSE UP-TITRATED)
     Route: 048
  2. LAMOTRIGINE. [Suspect]
     Active Substance: LAMOTRIGINE
     Dosage: UNK, DOSE UP-TITRATED
     Route: 048
     Dates: start: 2020
  3. FYCOMPA [Suspect]
     Active Substance: PERAMPANEL
     Indication: EPILEPSY
     Dosage: 6 MILLIGRAM, ONCE A DAY
     Route: 048
     Dates: start: 201902
  4. LACOSAMIDE. [Suspect]
     Active Substance: LACOSAMIDE
     Indication: EPILEPSY
     Dosage: 300 MILLIGRAM
     Route: 048
     Dates: start: 2018
  5. LAMOTRIGINE. [Suspect]
     Active Substance: LAMOTRIGINE
     Indication: EPILEPSY
     Dosage: 450 MILLIGRAM
     Route: 048
     Dates: start: 201809
  6. FYCOMPA [Suspect]
     Active Substance: PERAMPANEL
     Dosage: 8 MILLIGRAM, ONCE A DAY
     Route: 048

REACTIONS (3)
  - Exposure during pregnancy [Recovered/Resolved]
  - Seizure [Unknown]
  - Abortion spontaneous [Recovered/Resolved]

NARRATIVE: CASE EVENT DATE: 2020
